FAERS Safety Report 6599185-0 (Version None)
Quarter: 2010Q1

REPORT INFORMATION
  Report Type: 
  Country: None (occurrence: None)
  Receive Date: 20100217
  Receipt Date: 20100127
  Transmission Date: 20100710
  Serious: Yes (Hospitalization, Other)
  Sender: FDA-Public Use
  Company Number: 2009AC000492

PATIENT
  Age: 59 Year
  Sex: Male

DRUGS (18)
  1. DIGOXIN [Suspect]
     Dosage: 0.25 MG;QD;PO
     Route: 048
     Dates: start: 19950501
  2. DIGOXIN [Suspect]
     Dosage: .25 MG;QD;PO
     Route: 048
     Dates: end: 20080801
  3. DIGOXIN [Suspect]
     Dosage: PO
     Route: 048
     Dates: start: 20050101
  4. ATENOLOL [Concomitant]
  5. COLACE [Concomitant]
  6. ASPIRIN [Concomitant]
  7. METFORMIN HYDROCHLORIDE [Concomitant]
  8. GLYBURIDE [Concomitant]
  9. LIPITOR [Concomitant]
  10. LISINOPRIL [Concomitant]
  11. NEXIUM [Concomitant]
  12. AMBIEN [Concomitant]
  13. PLAVIX [Concomitant]
  14. LEXAPRO [Concomitant]
  15. TRICOR [Concomitant]
  16. XANAX [Concomitant]
  17. PROTONIX [Concomitant]
  18. JANUVIA [Concomitant]

REACTIONS (20)
  - ANGINA UNSTABLE [None]
  - ANXIETY [None]
  - ASTHENIA [None]
  - ATELECTASIS [None]
  - BLOOD PRESSURE SYSTOLIC INCREASED [None]
  - CHEST PAIN [None]
  - CHOLECYSTITIS [None]
  - CHOLELITHIASIS [None]
  - CORONARY ARTERY DISEASE [None]
  - DIZZINESS [None]
  - EFFUSION [None]
  - EXERCISE ELECTROCARDIOGRAM ABNORMAL [None]
  - HYPERSOMNIA [None]
  - HYPOTENSION [None]
  - INTERMITTENT CLAUDICATION [None]
  - LEFT VENTRICULAR DYSFUNCTION [None]
  - LEFT VENTRICULAR END-DIASTOLIC PRESSURE INCREASED [None]
  - LETHARGY [None]
  - MITRAL VALVE INCOMPETENCE [None]
  - VENTRICULAR TACHYCARDIA [None]
